FAERS Safety Report 9025515 (Version 6)
Quarter: 2014Q2

REPORT INFORMATION
  Report Type: Spontaneous
  Country: US (occurrence: US)
  Receive Date: 20130122
  Receipt Date: 20140422
  Transmission Date: 20141212
  Serious: Yes (Hospitalization, Other)
  Sender: FDA-Public Use
  Company Number: US-009507513-1301USA009735

PATIENT
  Sex: Female
  Weight: 77.98 kg

DRUGS (5)
  1. FOSAMAX [Suspect]
     Indication: OSTEOPOROSIS
     Dosage: 10 MG, QD
     Route: 048
     Dates: start: 199509, end: 200110
  2. FOSAMAX [Suspect]
     Dosage: 70 MG, QW
     Route: 048
     Dates: start: 200110, end: 200802
  3. ALENDRONATE SODIUM [Suspect]
     Indication: OSTEOPOROSIS
     Dosage: 70 MG, QW
     Route: 048
     Dates: start: 200802, end: 201008
  4. VITAMINS (UNSPECIFIED) [Concomitant]
     Dosage: 1 DF, QD
     Dates: start: 1980
  5. VITAMIN D (UNSPECIFIED) [Concomitant]
     Dosage: 2000 IU, QD
     Dates: start: 1980

REACTIONS (59)
  - Femur fracture [Recovered/Resolved]
  - Open reduction of fracture [Unknown]
  - Removal of internal fixation [Unknown]
  - Hip arthroplasty [Unknown]
  - Surgery [Unknown]
  - Hip arthroplasty [Unknown]
  - Compression fracture [Unknown]
  - Pulmonary mass [Unknown]
  - Intervertebral disc protrusion [Unknown]
  - Arthropathy [Unknown]
  - Haematoma [Unknown]
  - Vertebral foraminal stenosis [Unknown]
  - Radiculitis [Unknown]
  - Coronary artery disease [Unknown]
  - Hypertension [Unknown]
  - Blood disorder [Unknown]
  - Hypothyroidism [Unknown]
  - Tachycardia [Unknown]
  - Diverticulitis [Unknown]
  - Hysterectomy [Unknown]
  - Appendicectomy [Unknown]
  - Osteoarthritis [Unknown]
  - Tonsillectomy [Unknown]
  - Cataract [Unknown]
  - Hyperlipidaemia [Unknown]
  - Fall [Unknown]
  - Atrial fibrillation [Unknown]
  - Mental disorder [Unknown]
  - Compression fracture [Unknown]
  - Compression fracture [Unknown]
  - Skin irritation [Unknown]
  - Haemangioma [Unknown]
  - Cystitis [Unknown]
  - Anaemia postoperative [Unknown]
  - Anaemia [Unknown]
  - Contusion [Unknown]
  - Leukocytosis [Unknown]
  - Urinary tract infection [Unknown]
  - Osteoarthritis [Unknown]
  - Fall [Unknown]
  - Hypotension [Unknown]
  - Hypomagnesaemia [Recovered/Resolved]
  - Hyponatraemia [Recovered/Resolved]
  - Malnutrition [Unknown]
  - Haemorrhagic anaemia [Unknown]
  - Atelectasis [Unknown]
  - Cystitis escherichia [Unknown]
  - Anaemia postoperative [Unknown]
  - Pyrexia [Unknown]
  - Pain in extremity [Unknown]
  - Drug ineffective [Unknown]
  - Drug ineffective [Unknown]
  - Drug ineffective [Unknown]
  - Drug ineffective [Unknown]
  - Arthralgia [Unknown]
  - Back pain [Not Recovered/Not Resolved]
  - Back pain [Unknown]
  - Treatment failure [Unknown]
  - Gastrooesophageal reflux disease [Unknown]
